FAERS Safety Report 4741514-4 (Version None)
Quarter: 2005Q3

REPORT INFORMATION
  Report Type: 
  Country: None (occurrence: None)
  Receive Date: 20050808
  Receipt Date: 20050801
  Transmission Date: 20060218
  Serious: Yes (Life-Threatening)
  Sender: FDA-Public Use
  Company Number: 2005-130994-NL

PATIENT
  Age: 24 Year
  Sex: Female

DRUGS (5)
  1. ROCURONIUM BROMIDE [Suspect]
     Indication: INDUCTION OF ANAESTHESIA
     Dosage: 30 MG ONCE
     Route: 042
     Dates: start: 20050721, end: 20050721
  2. THIOPENTAL SODIUM [Suspect]
     Indication: INDUCTION OF ANAESTHESIA
     Dosage: 500 MG ONCE
     Route: 042
     Dates: start: 20050721, end: 20050721
  3. NITROUS OXIDE [Suspect]
     Dates: start: 20050721, end: 20050721
  4. ALFENTANIL [Concomitant]
  5. OXYTOCIN [Concomitant]

REACTIONS (3)
  - ANAESTHETIC COMPLICATION [None]
  - CARDIAC ARREST [None]
  - DRUG EXPOSURE DURING PREGNANCY [None]
